FAERS Safety Report 4861904-9 (Version None)
Quarter: 2005Q4

REPORT INFORMATION
  Report Type: 
  Country: None (occurrence: None)
  Receive Date: 20051130
  Receipt Date: 20050812
  Transmission Date: 20060501
  Serious: No
  Sender: FDA-Public Use
  Company Number: FABR-11205

PATIENT
  Age: 63 Year
  Sex: Female

DRUGS (3)
  1. FABRAZYME [Suspect]
     Indication: FABRY'S DISEASE
     Dosage: 70 MG Q2WKS IV
     Route: 042
     Dates: start: 20050728
  2. ACETAMINOPHEN [Concomitant]
  3. CLARITIN [Concomitant]

REACTIONS (1)
  - BLOOD PRESSURE INCREASED [None]
